FAERS Safety Report 23855590 (Version 1)
Quarter: 2024Q2

REPORT INFORMATION
  Report Type: Report from Study
  Country: AR (occurrence: AR)
  Receive Date: 20240514
  Receipt Date: 20240514
  Transmission Date: 20240716
  Serious: Yes (Hospitalization)
  Sender: FDA-Public Use
  Company Number: AR-VER-202400002

PATIENT
  Age: 3 Year
  Sex: Female

DRUGS (1)
  1. TRIPTORELIN PAMOATE [Suspect]
     Active Substance: TRIPTORELIN PAMOATE
     Indication: Precocious puberty
     Dosage: 11.25 MILLIGRAM(S), 1 IN 3 MONTH
     Route: 030
     Dates: start: 20230109

REACTIONS (1)
  - Infantile spasms [Recovered/Resolved]

NARRATIVE: CASE EVENT DATE: 20240313
